FAERS Safety Report 6074699-0 (Version None)
Quarter: 2009Q1

REPORT INFORMATION
  Report Type: 
  Country: None (occurrence: None)
  Receive Date: 20090209
  Receipt Date: 20090209
  Transmission Date: 20090719
  Serious: Yes (Disabling)
  Sender: FDA-Public Use
  Company Number: None

PATIENT
  Sex: Male
  Weight: 72.5755 kg

DRUGS (2)
  1. BRIMONIDINE TARTRATE [Suspect]
     Indication: GLAUCOMA
     Dosage: 0.2 % BID EYE
  2. TIMOLOL MALEATE [Suspect]
     Indication: GLAUCOMA
     Dosage: 0.5 % BID EYE

REACTIONS (1)
  - HYPERSOMNIA [None]
